FAERS Safety Report 26026869 (Version 1)
Quarter: 2025Q4

REPORT INFORMATION
  Report Type: Spontaneous
  Country: US (occurrence: None)
  Receive Date: 20251111
  Receipt Date: 20251111
  Transmission Date: 20260118
  Serious: Yes (Other)
  Sender: FDA-CTU
  Company Number: None

PATIENT
  Age: 30 Year
  Sex: Female

DRUGS (11)
  1. REVLIMID [Suspect]
     Active Substance: LENALIDOMIDE
     Indication: Plasma cell leukaemia
     Dosage: TAKE 1 CAPSULE BY MOUTH ONCE DAILY FOR 21 DAYS.
     Route: 048
     Dates: start: 20250903
  2. ACYCLOVIR CAP 200MG [Concomitant]
  3. ACYCLOVIR CAP 800MG [Concomitant]
  4. CALCIUM TAB 500MG [Concomitant]
  5. CARVEDILOL TAB 12.5MG [Concomitant]
  6. COD LIVER OIL [Concomitant]
     Active Substance: COD LIVER OIL
  7. ELIOUIS TAB 5MG [Concomitant]
  8. GABAPENTIN [Concomitant]
     Active Substance: GABAPENTIN
  9. GLUCOSE CHW ORANGE [Concomitant]
  10. HUMALOG KWIK INJ 100/ML [Concomitant]
  11. HYDRALAZINE [Concomitant]
     Active Substance: HYDRALAZINE HYDROCHLORIDE

REACTIONS (5)
  - Hypoaesthesia [None]
  - Hypoaesthesia [None]
  - Diarrhoea [None]
  - Intentional dose omission [None]
  - Spinal operation [None]

NARRATIVE: CASE EVENT DATE: 20251022
